FAERS Safety Report 9593185 (Version 1)
Quarter: 2013Q4

REPORT INFORMATION
  Report Type: Spontaneous
  Country: US (occurrence: US)
  Receive Date: 20131004
  Receipt Date: 20131004
  Transmission Date: 20140711
  Serious: Yes (Hospitalization)
  Sender: FDA-Public Use
  Company Number: PHHY2013US107740

PATIENT
  Age: 15 Year
  Sex: Male

DRUGS (11)
  1. SULFASALAZINE [Suspect]
     Indication: INFLAMMATORY BOWEL DISEASE
  2. METHYLPREDNISOLONE [Suspect]
     Dosage: 40 MG, EVERY 12 HOURS
     Route: 042
  3. METHYLPREDNISOLONE [Suspect]
     Dosage: 30 MG, BID
     Route: 042
  4. METHYLPREDNISOLONE [Suspect]
     Dosage: 1 G/DAY
  5. METHYLPREDNISOLONE [Suspect]
     Dosage: 2 MG/KG/DAY
  6. DOXYCYCLINE [Concomitant]
     Indication: ROCKY MOUNTAIN SPOTTED FEVER
  7. ACETAMINOPHEN [Concomitant]
  8. DIPHENHYDRAMINE [Concomitant]
  9. VANCOMYCIN [Concomitant]
     Indication: SEPSIS
  10. CEFTRIAXONE [Concomitant]
     Indication: SEPSIS
  11. IBUPROFEN [Concomitant]

REACTIONS (39)
  - Drug reaction with eosinophilia and systemic symptoms [Recovering/Resolving]
  - Rash [Recovering/Resolving]
  - Myalgia [Unknown]
  - Headache [Unknown]
  - Pyrexia [Unknown]
  - Lethargy [Unknown]
  - Chills [Unknown]
  - Pulse pressure increased [Unknown]
  - Hyperhidrosis [Unknown]
  - Papule [Unknown]
  - Skin plaque [Unknown]
  - Erythema [Unknown]
  - Face oedema [Unknown]
  - Periorbital oedema [Unknown]
  - Lymphadenopathy [Unknown]
  - C-reactive protein increased [Unknown]
  - Blood phosphorus decreased [Unknown]
  - Blood sodium decreased [Unknown]
  - Blood calcium decreased [Unknown]
  - Blood magnesium decreased [Unknown]
  - Macule [Unknown]
  - Neutrophil toxic granulation present [Unknown]
  - Purpura [Unknown]
  - Alanine aminotransferase increased [Unknown]
  - Aspartate aminotransferase increased [Unknown]
  - White blood cell count increased [Unknown]
  - Eosinophil count increased [Unknown]
  - Nausea [Unknown]
  - Vomiting [Unknown]
  - Fatigue [Unknown]
  - Tachycardia [Unknown]
  - Jaundice [Unknown]
  - Hepatomegaly [Unknown]
  - Platelet count decreased [Unknown]
  - Liver disorder [Unknown]
  - Hepatitis acute [Unknown]
  - Inflammatory bowel disease [Unknown]
  - Disease recurrence [Unknown]
  - Human herpes virus 6 serology positive [Unknown]
